APPROVED DRUG PRODUCT: VAGISTAT-1
Active Ingredient: TIOCONAZOLE
Strength: 6.5%
Dosage Form/Route: OINTMENT;VAGINAL
Application: N020676 | Product #001
Applicant: COMBE INC
Approved: Feb 11, 1997 | RLD: Yes | RS: Yes | Type: OTC